FAERS Safety Report 4999788-0 (Version None)
Quarter: 2006Q2

REPORT INFORMATION
  Report Type: 
  Country: None (occurrence: None)
  Receive Date: 20060509
  Receipt Date: 20060509
  Transmission Date: 20061013
  Serious: Yes (Hospitalization)
  Sender: FDA-Public Use
  Company Number: None

PATIENT
  Age: 27 Month
  Sex: Female

DRUGS (4)
  1. TANAFED DMX SUSPENSION [Suspect]
     Indication: EAR INFECTION
     Dosage: 2 TSP, AS NEEDED Q 12HR, ORAL
     Route: 048
  2. TANAFED DMX SUSPENSION [Suspect]
     Indication: SINUSITIS
     Dosage: 2 TSP, AS NEEDED Q 12HR, ORAL
     Route: 048
  3. ZYRTEC [Concomitant]
  4. ANAPROX [Concomitant]

REACTIONS (6)
  - DRUG DISPENSING ERROR [None]
  - EXCITABILITY [None]
  - FEBRILE CONVULSION [None]
  - INCORRECT DOSE ADMINISTERED [None]
  - INSOMNIA [None]
  - RESTLESSNESS [None]
